FAERS Safety Report 10264946 (Version 1)
Quarter: 2014Q2

REPORT INFORMATION
  Report Type: Spontaneous
  Country: FR (occurrence: FR)
  Receive Date: 20140627
  Receipt Date: 20140627
  Transmission Date: 20141212
  Serious: Yes (Other)
  Sender: FDA-Public Use
  Company Number: FR-PFIZER INC-2014172973

PATIENT
  Age: 25 Year
  Sex: Female
  Weight: 67 kg

DRUGS (1)
  1. PROSTINE E2 [Suspect]
     Indication: INDUCTION OF CERVIX RIPENING
     Dosage: 2 MG, UNK
     Route: 067
     Dates: start: 20140411

REACTIONS (1)
  - Hypertonia [Unknown]
